FAERS Safety Report 5416854-6 (Version None)
Quarter: 2007Q3

REPORT INFORMATION
  Report Type: 
  Country: None (occurrence: None)
  Receive Date: 20070816
  Receipt Date: 20070814
  Transmission Date: 20080115
  Serious: Yes (Other)
  Sender: FDA-Public Use
  Company Number: US-MERCK-0706USA00253

PATIENT
  Age: 49 Year
  Sex: Female

DRUGS (6)
  1. JANUVIA [Suspect]
     Indication: TYPE 2 DIABETES MELLITUS
     Route: 048
     Dates: start: 20070301, end: 20070401
  2. SYNTHROID [Concomitant]
     Route: 048
  3. GLUCOVANCE [Concomitant]
     Route: 048
  4. LIPITOR [Concomitant]
     Route: 048
  5. POTASSIUM CHLORIDE [Concomitant]
     Route: 048
  6. DIOVAN HCT [Concomitant]
     Route: 048

REACTIONS (3)
  - ERYTHEMA [None]
  - EXFOLIATIVE RASH [None]
  - PRURITUS [None]
